FAERS Safety Report 9669320 (Version 13)
Quarter: 2015Q3

REPORT INFORMATION
  Report Type: Report from Study
  Country: AU (occurrence: AU)
  Receive Date: 20131105
  Receipt Date: 20150924
  Transmission Date: 20151125
  Serious: Yes (Hospitalization, Disabling, Other)
  Sender: FDA-Public Use
  Company Number: PHHY2013AU117608

PATIENT
  Age: 35 Year
  Sex: Male
  Weight: 118 kg

DRUGS (8)
  1. CLOZARIL [Suspect]
     Active Substance: CLOZAPINE
     Dosage: UNK
     Route: 048
     Dates: start: 20150531
  2. WARFARIN [Concomitant]
     Active Substance: WARFARIN
     Indication: PRODUCT USED FOR UNKNOWN INDICATION
     Dosage: UNK
     Route: 048
  3. OLANZAPINE. [Concomitant]
     Active Substance: OLANZAPINE
     Indication: PRODUCT USED FOR UNKNOWN INDICATION
     Dosage: UNK
     Route: 065
  4. CLOZARIL [Suspect]
     Active Substance: CLOZAPINE
     Indication: SCHIZOPHRENIA
     Dosage: 800 MG
     Route: 048
     Dates: start: 20130823, end: 20150430
  5. LORAZEPAM. [Concomitant]
     Active Substance: LORAZEPAM
     Indication: PRODUCT USED FOR UNKNOWN INDICATION
     Dosage: 1 MG, 8QD
     Route: 048
  6. CLOZARIL [Suspect]
     Active Substance: CLOZAPINE
     Dosage: 350 MG, QD
     Route: 048
     Dates: start: 20150516
  7. CLOZARIL [Suspect]
     Active Substance: CLOZAPINE
     Dosage: 800 MG
     Route: 048
  8. BETADINE [Concomitant]
     Active Substance: POVIDONE-IODINE
     Indication: SKIN FISSURES
     Dosage: UNK OT, BID (FOR BOTH HEELS)
     Route: 061

REACTIONS (7)
  - Constipation [Recovering/Resolving]
  - Salivary hypersecretion [Recovering/Resolving]
  - Schizophrenia [Unknown]
  - Mental disorder [Unknown]
  - Antipsychotic drug level above therapeutic [Unknown]
  - Psychotic disorder [Unknown]
  - Antipsychotic drug level below therapeutic [Recovering/Resolving]

NARRATIVE: CASE EVENT DATE: 20131018
